FAERS Safety Report 22083970 (Version 2)
Quarter: 2023Q2

REPORT INFORMATION
  Report Type: Spontaneous
  Country: AR (occurrence: AR)
  Receive Date: 20230310
  Receipt Date: 20230411
  Transmission Date: 20230722
  Serious: No
  Sender: FDA-Public Use
  Company Number: AR-PFIZER INC-PV202300043351

PATIENT
  Age: 43 Year
  Sex: Female

DRUGS (1)
  1. SOMAVERT [Suspect]
     Active Substance: PEGVISOMANT
     Indication: Acromegaly
     Dosage: 10 MG, DAILY (7 TIMES PER WEEK)
     Dates: start: 20150110

REACTIONS (2)
  - Device difficult to use [Unknown]
  - Device leakage [Unknown]
